FAERS Safety Report 10461366 (Version 1)
Quarter: 2014Q3

REPORT INFORMATION
  Report Type: Spontaneous
  Country: PT (occurrence: None)
  Receive Date: 20140916
  Receipt Date: 20140916
  Transmission Date: 20150326
  Serious: Yes (Hospitalization)
  Sender: FDA-Public Use
  Company Number: PT-017053

PATIENT
  Age: 40 Year
  Sex: Female

DRUGS (2)
  1. MENOPUR [Suspect]
     Active Substance: FOLLICLE STIMULATING HORMONE BETA POLYPEPTIDE\LUTROPIN ALFA
     Indication: IN VITRO FERTILISATION
  2. GONAL-F [Suspect]
     Active Substance: FOLLITROPIN
     Indication: IN VITRO FERTILISATION

REACTIONS (9)
  - Hallucination, auditory [None]
  - Psychomotor hyperactivity [None]
  - Feeling abnormal [None]
  - Asthenia [None]
  - Persecutory delusion [None]
  - Fatigue [None]
  - Psychotic disorder [None]
  - Headache [None]
  - Treatment failure [None]

NARRATIVE: CASE EVENT DATE: 201105
